FAERS Safety Report 7604179-X (Version None)
Quarter: 2011Q3

REPORT INFORMATION
  Report Type: 
  Country: None (occurrence: None)
  Receive Date: 20110712
  Receipt Date: 20110705
  Transmission Date: 20111222
  Serious: Yes (Hospitalization, Other)
  Sender: FDA-Public Use
  Company Number: IN-MERCK-1107USA00360

PATIENT
  Age: 56 Year
  Sex: Female
  Weight: 52 kg

DRUGS (3)
  1. JANUVIA [Suspect]
     Indication: DIABETES MELLITUS
     Route: 048
     Dates: start: 20100610, end: 20110501
  2. JANUVIA [Suspect]
     Indication: RENAL FAILURE CHRONIC
     Route: 048
     Dates: start: 20100610, end: 20110501
  3. INSULIN BASAL [Concomitant]
     Route: 065
     Dates: start: 20110620

REACTIONS (3)
  - BLOOD UREA INCREASED [None]
  - RENAL FAILURE CHRONIC [None]
  - BLOOD CREATININE INCREASED [None]
